FAERS Safety Report 6402796-6 (Version None)
Quarter: 2009Q4

REPORT INFORMATION
  Report Type: 
  Country: None (occurrence: None)
  Receive Date: 20091016
  Receipt Date: 20070828
  Transmission Date: 20100525
  Serious: Yes (Disabling)
  Sender: FDA-Public Use
  Company Number: US-ASTRAZENECA-2006UW07836

PATIENT
  Sex: Female
  Weight: 156.5 kg

DRUGS (8)
  1. SEROQUEL [Suspect]
     Indication: SLEEP DISORDER
     Dosage: 25-100 MG
     Route: 048
     Dates: start: 20021121
  2. CYMBALTA [Concomitant]
     Route: 048
  3. ZOCOR [Concomitant]
     Route: 048
  4. PREVACID [Concomitant]
     Dosage: 15-50 MG FLUCTUATING
     Route: 048
  5. ZYLOPRIM [Concomitant]
     Route: 048
  6. SYNTHROID [Concomitant]
     Route: 048
  7. LISINOPRIL [Concomitant]
     Route: 048
  8. FLEXERIL [Concomitant]
     Route: 048

REACTIONS (2)
  - ILL-DEFINED DISORDER [None]
  - MULTIPLE INJURIES [None]
